FAERS Safety Report 8391252-4 (Version None)
Quarter: 2012Q2

REPORT INFORMATION
  Report Type: 
  Country: None (occurrence: None)
  Receive Date: 20120529
  Receipt Date: 20120523
  Transmission Date: 20120825
  Serious: Yes (Other)
  Sender: FDA-Public Use
  Company Number: US-AMGEN-USASP2012032446

PATIENT
  Age: 48 Year
  Sex: Female

DRUGS (2)
  1. ENBREL [Suspect]
     Indication: PSORIATIC ARTHROPATHY
     Dosage: 50 MG, QWK
     Dates: start: 20110901
  2. TREXALL [Concomitant]
     Dosage: 4 MG, UNK
     Dates: start: 20100101

REACTIONS (4)
  - VISION BLURRED [None]
  - PAIN [None]
  - SOMNOLENCE [None]
  - OVARIAN MASS [None]
